FAERS Safety Report 13873092 (Version 1)
Quarter: 2017Q3

REPORT INFORMATION
  Report Type: Spontaneous
  Country: SE (occurrence: SE)
  Receive Date: 20170816
  Receipt Date: 20170816
  Transmission Date: 20171127
  Serious: Yes (Death)
  Sender: FDA-Public Use
  Company Number: SE-IMPAX LABORATORIES, INC-2017-IPXL-02417

PATIENT
  Age: 18 Year
  Sex: Male

DRUGS (1)
  1. ADRENACLICK [Suspect]
     Active Substance: EPINEPHRINE
     Indication: VENTRICULAR HYPOKINESIA
     Dosage: UNK
     Route: 065

REACTIONS (1)
  - Stress cardiomyopathy [Fatal]
